FAERS Safety Report 8334787-2 (Version None)
Quarter: 2012Q2

REPORT INFORMATION
  Report Type: 
  Country: None (occurrence: None)
  Receive Date: 20120503
  Receipt Date: 20120424
  Transmission Date: 20120825
  Serious: Yes (Other)
  Sender: FDA-Public Use
  Company Number: PHHY2012BR035079

PATIENT
  Sex: Female

DRUGS (7)
  1. BUDESONIDE [Suspect]
     Dosage: 1 DF, BID
  2. ONBREZ [Suspect]
     Dosage: 1 DF, UNK
  3. COMBIVENT [Suspect]
     Dosage: 2 DF, Q6H
  4. BAMIFIX [Suspect]
     Dosage: 1 DF, Q6H
  5. BUDESONIDE [Suspect]
     Dosage: 1 DF, Q12H
  6. SPIRIVA [Suspect]
     Dosage: 2 DF, QD
  7. BAMIFIX [Suspect]
     Dosage: 1 DF, TID

REACTIONS (5)
  - NECK PAIN [None]
  - DYSPNOEA [None]
  - EMBOLISM [None]
  - NASOPHARYNGITIS [None]
  - CHRONIC OBSTRUCTIVE PULMONARY DISEASE [None]
